FAERS Safety Report 24945531 (Version 2)
Quarter: 2025Q3

REPORT INFORMATION
  Report Type: Spontaneous
  Country: RU (occurrence: RU)
  Receive Date: 20250209
  Receipt Date: 20250812
  Transmission Date: 20251020
  Serious: Yes (Other)
  Sender: ALEXION PHARMACEUTICALS
  Company Number: None

PATIENT
  Sex: Female

DRUGS (1)
  1. DAPAGLIFLOZIN [Suspect]
     Active Substance: DAPAGLIFLOZIN
     Route: 065

REACTIONS (6)
  - Pyelocaliectasis [Unknown]
  - Bacteriuria [Unknown]
  - Haematuria [Unknown]
  - Nitrite urine present [Unknown]
  - Back pain [Unknown]
  - Calculus urinary [Unknown]
